FAERS Safety Report 7971916-4 (Version None)
Quarter: 2011Q4

REPORT INFORMATION
  Report Type: 
  Country: None (occurrence: None)
  Receive Date: 20111212
  Receipt Date: 20111205
  Transmission Date: 20120403
  Serious: Yes (Other)
  Sender: FDA-Public Use
  Company Number: PHHY2011AR106712

PATIENT
  Sex: Male

DRUGS (1)
  1. EXFORGE [Suspect]
     Indication: BLOOD PRESSURE
     Dosage: 1 DF (160 MG VALS AND 5 MG AMLODIPINE), DAILY

REACTIONS (3)
  - DRUG INEFFECTIVE [None]
  - FALL [None]
  - LOWER LIMB FRACTURE [None]
